FAERS Safety Report 14534652 (Version 1)
Quarter: 2018Q1

REPORT INFORMATION
  Report Type: Spontaneous
  Country: FR (occurrence: FR)
  Receive Date: 20180215
  Receipt Date: 20180215
  Transmission Date: 20180509
  Serious: Yes (Hospitalization, Other)
  Sender: FDA-Public Use
  Company Number: FR-GLAXOSMITHKLINE-FR2018021281

PATIENT
  Age: 59 Year
  Sex: Male

DRUGS (2)
  1. SCOPOLAMINE [Suspect]
     Active Substance: SCOPOLAMINE
     Indication: SALIVARY HYPERSECRETION
     Dosage: 1 MG, UNK
     Route: 058
  2. SCOPODERM TTS [Suspect]
     Active Substance: SCOPOLAMINE
     Indication: SALIVARY HYPERSECRETION
     Dosage: 1 MG, UNK
     Route: 062
     Dates: start: 20180120, end: 20180122

REACTIONS (5)
  - Fall [Recovered/Resolved]
  - Confusional state [Recovered/Resolved]
  - Hallucination [Recovered/Resolved]
  - Agitation [Recovered/Resolved]
  - Urinary retention [Recovered/Resolved]

NARRATIVE: CASE EVENT DATE: 20180122
